FAERS Safety Report 5350213-X (Version None)
Quarter: 2007Q2

REPORT INFORMATION
  Report Type: 
  Country: None (occurrence: None)
  Receive Date: 20070521
  Receipt Date: 20070315
  Transmission Date: 20071010
  Serious: No
  Sender: FDA-Public Use
  Company Number: WAES 0703USA03213

PATIENT
  Age: 55 Year
  Sex: Male

DRUGS (2)
  1. JANUVIA [Suspect]
     Indication: DIABETES MELLITUS
     Dosage: 100 MG/DAILY/PO
     Route: 048
  2. METFORMIN HCL [Suspect]
     Dosage: 850 MG

REACTIONS (3)
  - DRUG INTOLERANCE [None]
  - RETCHING [None]
  - VOMITING [None]
